FAERS Safety Report 20330762 (Version 1)
Quarter: 2022Q1

REPORT INFORMATION
  Report Type: Spontaneous
  Country: JP (occurrence: JP)
  Receive Date: 20220113
  Receipt Date: 20220113
  Transmission Date: 20220424
  Serious: Yes (Death, Other)
  Sender: FDA-Public Use
  Company Number: JP-ASTELLAS-2021JP020002

PATIENT
  Age: 9 Decade
  Sex: Male

DRUGS (1)
  1. XTANDI [Suspect]
     Active Substance: ENZALUTAMIDE
     Indication: Hormone-refractory prostate cancer
     Route: 048

REACTIONS (4)
  - Peyronie^s disease [Unknown]
  - Haematuria [Unknown]
  - Prostate cancer [Fatal]
  - Prostatic specific antigen increased [Unknown]

NARRATIVE: CASE EVENT DATE: 20211201
